FAERS Safety Report 5593836-5 (Version None)
Quarter: 2008Q1

REPORT INFORMATION
  Report Type: 
  Country: None (occurrence: None)
  Receive Date: 20080116
  Receipt Date: 20080111
  Transmission Date: 20080703
  Serious: Yes (Hospitalization)
  Sender: FDA-Public Use
  Company Number: GB-BOEHRINGER INGELHEIM PHARMACEUTICALS, INC.-2008-UK-00136UK

PATIENT
  Age: 27 Year
  Sex: Male

DRUGS (9)
  1. HYOSCINE (0015/5005R/0074R) [Suspect]
     Dosage: TAKEN ONCE
     Route: 048
     Dates: start: 20070604, end: 20070604
  2. HYOSCINE (0015/5005R/0074R) [Suspect]
     Route: 048
  3. CLOZARIL [Suspect]
     Indication: SCHIZOPHRENIA
     Dosage: TAKEN ONCE
     Route: 048
     Dates: start: 20070604, end: 20070604
  4. CLOZARIL [Suspect]
     Route: 048
     Dates: start: 20011003
  5. COCAINE [Suspect]
  6. RANITIDINE [Suspect]
     Dosage: TAKEN ONCE
     Route: 048
     Dates: start: 20070604, end: 20070604
  7. RANITIDINE [Suspect]
     Route: 048
  8. VALPROATE SODIUM [Suspect]
     Indication: MOOD ALTERED
     Route: 048
     Dates: start: 20070604, end: 20070604
  9. VALPROATE SODIUM [Suspect]
     Route: 048

REACTIONS (9)
  - BLOOD CREATINE PHOSPHOKINASE INCREASED [None]
  - C-REACTIVE PROTEIN INCREASED [None]
  - HYPOXIA [None]
  - LOWER RESPIRATORY TRACT INFECTION [None]
  - OVERDOSE [None]
  - PYREXIA [None]
  - RENAL FAILURE ACUTE [None]
  - TACHYCARDIA [None]
  - THROMBOCYTOPENIA [None]
